FAERS Safety Report 20858034 (Version 1)
Quarter: 2022Q2

REPORT INFORMATION
  Report Type: Spontaneous
  Country: US (occurrence: US)
  Receive Date: 20220521
  Receipt Date: 20220521
  Transmission Date: 20220721
  Serious: No
  Sender: FDA-Public Use
  Company Number: US-BRISTOL-MYERS SQUIBB COMPANY-2022-037945

PATIENT
  Age: 89 Year
  Sex: Male

DRUGS (1)
  1. REVLIMID [Suspect]
     Active Substance: LENALIDOMIDE
     Indication: Drug therapy
     Dosage: TAKE 1 CAPSULE BY ?MOUTH DAILY ON ?DAYS 1-21 OF ?EACH 28 DAY ?CYCLE
     Route: 048

REACTIONS (2)
  - Decreased appetite [Unknown]
  - Intentional product use issue [Unknown]
